FAERS Safety Report 10928076 (Version 1)
Quarter: 2015Q1

REPORT INFORMATION
  Report Type: Spontaneous
  Country: None (occurrence: None)
  Receive Date: 20150317
  Receipt Date: 20150317
  Transmission Date: 20150721
  Serious: Yes (Life-Threatening, Disabling)
  Sender: FDA-Public Use
  Company Number: None

PATIENT
  Age: 37 Year
  Sex: Male
  Weight: 83.92 kg

DRUGS (1)
  1. PROPECIA [Suspect]
     Active Substance: FINASTERIDE
     Dates: start: 20140331, end: 20140424

REACTIONS (2)
  - Adrenal insufficiency [None]
  - Blood testosterone decreased [None]

NARRATIVE: CASE EVENT DATE: 20140424
